FAERS Safety Report 9035745 (Version 1)
Quarter: 2013Q1

REPORT INFORMATION
  Report Type: Spontaneous
  Country: US (occurrence: US)
  Receive Date: 20130129
  Receipt Date: 20130129
  Transmission Date: 20140127
  Serious: No
  Sender: FDA-Public Use
  Company Number: US-ABBOTT-12P-163-0921141-00

PATIENT
  Age: 46 None
  Sex: 0

DRUGS (2)
  1. HUMIRA 40 MG/ 0.8 ML PRE-FILLED SYRINGE [Suspect]
     Indication: PSORIATIC ARTHROPATHY
     Dates: start: 201201
  2. NUMBER OF MEDICATION(S) [Concomitant]
     Indication: CARDIOMYOPATHY

REACTIONS (1)
  - Psoriasis [Not Recovered/Not Resolved]
